FAERS Safety Report 18329909 (Version 1)
Quarter: 2020Q3

REPORT INFORMATION
  Report Type: Spontaneous
  Country: ES (occurrence: ES)
  Receive Date: 20200930
  Receipt Date: 20200930
  Transmission Date: 20201103
  Serious: Yes (Hospitalization)
  Sender: FDA-Public Use
  Company Number: ES-PFIZER INC-2020374118

PATIENT
  Age: 75 Year
  Sex: Male

DRUGS (8)
  1. DOXORUBICIN HCL [Suspect]
     Active Substance: DOXORUBICIN HYDROCHLORIDE
     Indication: B-CELL LYMPHOMA
     Dosage: UNK UNK, CYCLIC (EACH 21 DAYS)
     Route: 042
     Dates: start: 20190826, end: 20200109
  2. PREDNISONE. [Suspect]
     Active Substance: PREDNISONE
     Indication: B-CELL LYMPHOMA
     Dosage: UNK UNK, CYCLIC (EACH 21 DAYS)
     Dates: start: 20190826, end: 20200109
  3. ALOPURINOL [Concomitant]
     Active Substance: ALLOPURINOL
     Indication: PRODUCT USED FOR UNKNOWN INDICATION
     Dosage: 300 MG, 1X/DAY
     Route: 048
     Dates: start: 20190723
  4. SPIRIVA RESPIMAT [Concomitant]
     Active Substance: TIOTROPIUM BROMIDE
     Indication: COUGH
     Dosage: 2 DF, DAILY (FREQ: 24H)
     Route: 055
     Dates: start: 20190613
  5. TAMSULOSINA [TAMSULOSIN] [Concomitant]
     Active Substance: TAMSULOSIN
     Indication: HYDRONEPHROSIS
     Dosage: 0.4 MG, 1X/DAY (FREQ: 24H)
     Route: 048
     Dates: start: 20200104
  6. VINCRISTINE [Suspect]
     Active Substance: VINCRISTINE
     Indication: B-CELL LYMPHOMA
     Dosage: UNK, CYCLIC (EACH 21 DAYS)
     Route: 042
     Dates: start: 20190826, end: 20200109
  7. ESOMEPRAZOL [ESOMEPRAZOLE] [Concomitant]
     Active Substance: ESOMEPRAZOLE
     Indication: PRODUCT USED FOR UNKNOWN INDICATION
     Dosage: 20 MG, 2X/DAY (FREQ:12 H)
     Route: 048
     Dates: start: 20190927
  8. CYCLOPHOSPHAMIDE. [Suspect]
     Active Substance: CYCLOPHOSPHAMIDE
     Indication: B-CELL LYMPHOMA
     Dosage: UNK UNK, CYCLIC (EACH 21 DAYS)
     Route: 042
     Dates: start: 20190826, end: 20200109

REACTIONS (1)
  - Acute left ventricular failure [Recovered/Resolved]

NARRATIVE: CASE EVENT DATE: 20200110
